FAERS Safety Report 6671145-0 (Version None)
Quarter: 2010Q2

REPORT INFORMATION
  Report Type: 
  Country: None (occurrence: None)
  Receive Date: 20100407
  Receipt Date: 20100326
  Transmission Date: 20101027
  Serious: Yes (Other)
  Sender: FDA-Public Use
  Company Number: PHHY2010FR19856

PATIENT
  Sex: Male

DRUGS (1)
  1. TASIGNA [Suspect]

REACTIONS (7)
  - ARTERIAL REPAIR [None]
  - ARTERITIS [None]
  - CAROTID ARTERY STENOSIS [None]
  - NEUTROPHILIA [None]
  - PERIPHERAL ISCHAEMIA [None]
  - RASH [None]
  - THROMBOSIS [None]
